FAERS Safety Report 16253668 (Version 1)
Quarter: 2019Q2

REPORT INFORMATION
  Report Type: Spontaneous
  Country: US (occurrence: US)
  Receive Date: 20190430
  Receipt Date: 20190430
  Transmission Date: 20190711
  Serious: No
  Sender: FDA-Public Use
  Company Number: US-ASTRAZENECA-2019SE62613

PATIENT
  Sex: Female
  Weight: 74.4 kg

DRUGS (11)
  1. LISINOPRIL. [Suspect]
     Active Substance: LISINOPRIL
     Indication: BLOOD PRESSURE ABNORMAL
     Route: 048
     Dates: start: 2013
  2. HYDROCHLOROTHIAZIDE. [Concomitant]
     Active Substance: HYDROCHLOROTHIAZIDE
     Indication: FLUID RETENTION
     Route: 048
     Dates: start: 201804
  3. PROPRANOLOL HYDROCHLORIDE. [Concomitant]
     Active Substance: PROPRANOLOL HYDROCHLORIDE
     Indication: CARDIAC DISORDER
     Route: 048
     Dates: start: 2016
  4. VALIUM [Concomitant]
     Active Substance: DIAZEPAM
     Indication: HOT FLUSH
     Dosage: 5.0MG AS REQUIRED
     Route: 048
     Dates: start: 1969
  5. HYDROCODONE AND ACETAMINOPHEN [Concomitant]
     Active Substance: ACETAMINOPHEN\HYDROCODONE
     Indication: BACK PAIN
     Dosage: AS REQUIRED
     Route: 048
  6. LISINOPRIL. [Suspect]
     Active Substance: LISINOPRIL
     Indication: BLOOD PRESSURE ABNORMAL
     Route: 048
     Dates: start: 2010
  7. LEVOTHYROXINE SODIUM. [Concomitant]
     Active Substance: LEVOTHYROXINE SODIUM
     Indication: THYROID DISORDER
     Route: 048
  8. BABY ASPIRIN DELAYED ACTION [Concomitant]
     Route: 048
  9. SYMBICORT [Suspect]
     Active Substance: BUDESONIDE\FORMOTEROL FUMARATE DIHYDRATE
     Indication: ASTHMA
     Dosage: 80/4.5 MCG 2 PUFFS TWICE DAILY
     Route: 055
     Dates: start: 20190417
  10. ESTRADIOL. [Concomitant]
     Active Substance: ESTRADIOL
     Indication: OOPHORECTOMY
     Route: 048
     Dates: start: 1990
  11. RANITIDINE. [Concomitant]
     Active Substance: RANITIDINE
     Indication: ABDOMINAL DISCOMFORT
     Route: 048

REACTIONS (12)
  - Asthma [Unknown]
  - Influenza [Unknown]
  - Rosacea [Unknown]
  - Asthenia [Unknown]
  - Body height decreased [Unknown]
  - Wrong technique in product usage process [Unknown]
  - Malaise [Unknown]
  - Sinusitis [Unknown]
  - Weight increased [Unknown]
  - Chest discomfort [Unknown]
  - Alopecia [Unknown]
  - Drug hypersensitivity [Unknown]
